FAERS Safety Report 8250557-8 (Version None)
Quarter: 2012Q2

REPORT INFORMATION
  Report Type: 
  Country: None (occurrence: None)
  Receive Date: 20120402
  Receipt Date: 20120324
  Transmission Date: 20120825
  Serious: Yes (Other)
  Sender: FDA-Public Use
  Company Number: CA-ROCHE-1054065

PATIENT
  Sex: Female

DRUGS (8)
  1. ADVAIR DISKUS 100/50 [Concomitant]
     Route: 065
  2. XOLAIR [Suspect]
     Indication: ASTHMA
     Route: 058
     Dates: start: 20110621, end: 20120224
  3. XOLAIR [Suspect]
     Indication: RHINITIS ALLERGIC
  4. VENTOLIN [Concomitant]
     Route: 065
  5. NEXIUM [Concomitant]
     Route: 065
  6. SINGULAIR [Concomitant]
     Route: 065
  7. RHINOCORT [Concomitant]
     Route: 065
  8. FLUTICASONE FUROATE [Concomitant]
     Route: 065

REACTIONS (1)
  - ASTHMA [None]
